FAERS Safety Report 19007847 (Version 1)
Quarter: 2021Q1

REPORT INFORMATION
  Report Type: Spontaneous
  Country: US (occurrence: US)
  Receive Date: 20210315
  Receipt Date: 20210315
  Transmission Date: 20210420
  Serious: No
  Sender: FDA-Public Use
  Company Number: US-SA-2021SA086987

PATIENT
  Age: 60 Year
  Sex: Female
  Weight: 108 kg

DRUGS (1)
  1. DUPIXENT [Suspect]
     Active Substance: DUPILUMAB
     Dosage: 200 MG, QOW
     Route: 058
     Dates: start: 20190917

REACTIONS (2)
  - Asthma [Unknown]
  - Spinal operation [Unknown]

NARRATIVE: CASE EVENT DATE: 20210204
